FAERS Safety Report 5871742-6 (Version None)
Quarter: 2008Q3

REPORT INFORMATION
  Report Type: 
  Country: None (occurrence: None)
  Receive Date: 20080905
  Receipt Date: 20080827
  Transmission Date: 20090109
  Serious: Yes (Hospitalization)
  Sender: FDA-Public Use
  Company Number: GR-BRISTOL-MYERS SQUIBB COMPANY-12413555

PATIENT
  Sex: Male

DRUGS (8)
  1. IRBESARTAN [Suspect]
     Indication: CARDIAC FAILURE
     Route: 048
     Dates: start: 20030617
  2. FUROSEMIDE [Concomitant]
  3. ACENOCOUMAROL [Concomitant]
  4. ALLOPURINOL [Concomitant]
  5. AMIODARONE HCL [Concomitant]
  6. ASPIRIN [Concomitant]
  7. INSULIN [Concomitant]
  8. ENALAPRIL MALEATE [Concomitant]

REACTIONS (1)
  - ANAEMIA [None]
